FAERS Safety Report 16703497 (Version 2)
Quarter: 2019Q3

REPORT INFORMATION
  Report Type: Spontaneous
  Country: CH (occurrence: CH)
  Receive Date: 20190814
  Receipt Date: 20190814
  Transmission Date: 20191004
  Serious: Yes (Hospitalization)
  Sender: FDA-Public Use
  Company Number: PHHY2019CH187877

PATIENT
  Age: 57 Year
  Sex: Female

DRUGS (7)
  1. PLAQUENIL [Concomitant]
     Active Substance: HYDROXYCHLOROQUINE SULFATE
     Indication: RAYNAUD^S PHENOMENON
     Dosage: 200 MG, QD (1-0-0)
     Route: 065
  2. SPIRICORT [Concomitant]
     Active Substance: PREDNISOLONE
     Indication: RAYNAUD^S PHENOMENON
     Dosage: UNK UKN, QD (0.25-0-0)
     Route: 065
  3. CO-VALSARTAN SANDOZ [Suspect]
     Active Substance: HYDROCHLOROTHIAZIDE\VALSARTAN
     Indication: HYPERTENSION
     Dosage: UNK UNK, QD (160/25 MG 1-0-0)
     Route: 065
  4. PLAQUENIL [Concomitant]
     Active Substance: HYDROXYCHLOROQUINE SULFATE
     Indication: ARTHRALGIA
  5. SPIRICORT [Concomitant]
     Active Substance: PREDNISOLONE
     Indication: ARTHRALGIA
     Dosage: UNK MG, QD (1.25 TO 75)
     Route: 065
  6. OSPEN [Suspect]
     Active Substance: PENICILLIN V
     Indication: PHARYNGITIS BACTERIAL
     Dosage: UNK IU, TID (1 MILLION, 1-1-1)
     Route: 065
  7. NOVALGIN (METAMIZOLE SODIUM) [Suspect]
     Active Substance: METAMIZOLE SODIUM
     Indication: PHARYNGITIS BACTERIAL
     Dosage: 500 MG, UNK
     Route: 065

REACTIONS (1)
  - Erythema multiforme [Recovered/Resolved]
